FAERS Safety Report 4367115-8 (Version None)
Quarter: 2004Q2

REPORT INFORMATION
  Report Type: 
  Country: None (occurrence: None)
  Receive Date: 20040528
  Receipt Date: 20040505
  Transmission Date: 20050107
  Serious: Yes (Hospitalization)
  Sender: FDA-Public Use
  Company Number: US-GLAXOSMITHKLINE-A0510894A

PATIENT
  Sex: Female

DRUGS (14)
  1. AVANDIA [Suspect]
     Indication: DRUG USE FOR UNKNOWN INDICATION
     Dosage: 4MG PER DAY
  2. PREMARIN [Concomitant]
  3. PHENYTOIN [Concomitant]
  4. ALTACE [Concomitant]
  5. LACTULOSE [Concomitant]
  6. SPIRONOLACTONE [Concomitant]
  7. METFORMIN HCL [Concomitant]
  8. AMITRIPTYLINE HCL [Concomitant]
  9. GLUCOPHAGE [Concomitant]
  10. NORVASC [Concomitant]
  11. CELEBREX [Concomitant]
  12. HYDROCHLOROTHIAZIDE [Concomitant]
  13. NEURONTIN [Concomitant]
  14. CEPHALEXIN [Concomitant]

REACTIONS (11)
  - AUTOIMMUNE HEPATITIS [None]
  - BILIARY CIRRHOSIS [None]
  - BLOOD ALKALINE PHOSPHATASE INCREASED [None]
  - CHOLESTASIS [None]
  - CHRONIC HEPATITIS [None]
  - HEPATIC CIRRHOSIS [None]
  - HEPATIC STEATOSIS [None]
  - LIVER DISORDER [None]
  - PORTAL HYPERTENSION [None]
  - TRANSAMINASES INCREASED [None]
  - VARICES OESOPHAGEAL [None]
